FAERS Safety Report 5145350-9 (Version None)
Quarter: 2006Q4

REPORT INFORMATION
  Report Type: 
  Country: None (occurrence: None)
  Receive Date: 20061101
  Receipt Date: 20061023
  Transmission Date: 20070319
  Serious: Yes (Other)
  Sender: FDA-Public Use
  Company Number: 2006SP004267

PATIENT
  Age: 32 Year
  Sex: Male
  Weight: 75 kg

DRUGS (10)
  1. DESLORATADINE [Suspect]
     Indication: ERYTHEMA
     Dosage: 5 MG; QD; PO
     Route: 048
     Dates: start: 20060911
  2. DESLORATADINE [Suspect]
     Indication: PAIN
     Dosage: 5 MG; QD; PO
     Route: 048
     Dates: start: 20060911
  3. DESLORATADINE [Suspect]
     Indication: PYREXIA
     Dosage: 5 MG; QD; PO
     Route: 048
     Dates: start: 20060911
  4. CLARITIN-D [Suspect]
     Indication: NASOPHARYNGITIS
  5. LEVOCETIRIZINE DIHYDROCHLORIDE [Suspect]
     Indication: ERYTHEMA
     Dosage: 5 MG; QD; PO
     Route: 048
     Dates: start: 20060911
  6. LEVOCETIRIZINE DIHYDROCHLORIDE [Suspect]
     Indication: PAIN
     Dosage: 5 MG; QD; PO
     Route: 048
     Dates: start: 20060911
  7. LEVOCETIRIZINE DIHYDROCHLORIDE [Suspect]
     Indication: PYREXIA
     Dosage: 5 MG; QD; PO
     Route: 048
     Dates: start: 20060911
  8. HYDROCORTISONE [Suspect]
     Indication: ERYTHEMA
  9. HYDROCORTISONE [Suspect]
     Indication: PAIN
  10. HYDROCORTISONE [Suspect]
     Indication: PYREXIA

REACTIONS (4)
  - ERYTHEMA [None]
  - PAIN IN EXTREMITY [None]
  - PYREXIA [None]
  - SKIN EXFOLIATION [None]
